FAERS Safety Report 5375558-9 (Version None)
Quarter: 2007Q2

REPORT INFORMATION
  Report Type: 
  Country: None (occurrence: None)
  Receive Date: 20070627
  Receipt Date: 20070615
  Transmission Date: 20071010
  Serious: Yes (Death)
  Sender: FDA-Public Use
  Company Number: 2007US001422

PATIENT
  Age: 64 Year
  Sex: Male

DRUGS (2)
  1. AMBISOME [Suspect]
     Indication: DRUG USE FOR UNKNOWN INDICATION
     Dosage: 300 MG
     Dates: start: 20050831, end: 20050911
  2. VORICONAZOLE (VORICONAZOLE) [Concomitant]

REACTIONS (2)
  - CEREBRAL TOXOPLASMOSIS [None]
  - HEPATOTOXICITY [None]
